FAERS Safety Report 20067170 (Version 1)
Quarter: 2021Q4

REPORT INFORMATION
  Report Type: Spontaneous
  Country: US (occurrence: US)
  Receive Date: 20211115
  Receipt Date: 20211115
  Transmission Date: 20220303
  Serious: No
  Sender: FDA-Public Use
  Company Number: US-SA-SAC20211109000770

PATIENT
  Age: 15 Year
  Sex: Male

DRUGS (1)
  1. DUPIXENT [Suspect]
     Active Substance: DUPILUMAB
     Indication: Asthma
     Dosage: 300MG/2ML, 300 MG, QOW
     Route: 058
     Dates: start: 20211023

REACTIONS (5)
  - Pruritus [Unknown]
  - Sleep disorder [Unknown]
  - Skin disorder [Unknown]
  - Skin fissures [Unknown]
  - Skin exfoliation [Unknown]
